FAERS Safety Report 7055857-5 (Version None)
Quarter: 2010Q4

REPORT INFORMATION
  Report Type: 
  Country: None (occurrence: None)
  Receive Date: 20101021
  Receipt Date: 20101012
  Transmission Date: 20110411
  Serious: Yes (Life-Threatening)
  Sender: FDA-Public Use
  Company Number: JP-MERCK-1004USA03882

PATIENT
  Age: 70 Year
  Sex: Female
  Weight: 63 kg

DRUGS (11)
  1. JANUVIA [Suspect]
     Indication: DIABETES MELLITUS
     Route: 048
     Dates: start: 20100407, end: 20100414
  2. AMARYL [Concomitant]
     Indication: DIABETES MELLITUS
     Route: 048
     Dates: start: 20010606, end: 20100414
  3. ACTOS [Suspect]
     Indication: DIABETES MELLITUS
     Route: 048
     Dates: start: 20010606, end: 20100414
  4. LASIX [Concomitant]
     Indication: PROPHYLAXIS
     Route: 048
     Dates: start: 20061117, end: 20100414
  5. UNASYN [Concomitant]
     Indication: PNEUMONIA
     Route: 042
     Dates: start: 20100402, end: 20100415
  6. THEODRIP [Concomitant]
     Indication: PNEUMONIA
     Route: 042
     Dates: start: 20100403, end: 20100430
  7. MUCOSOLVAN [Concomitant]
     Indication: PNEUMONIA
     Route: 048
     Dates: start: 20100403, end: 20100414
  8. DASEN [Concomitant]
     Indication: PNEUMONIA
     Route: 048
     Dates: start: 20100403, end: 20100414
  9. HOKUNALIN [Concomitant]
     Indication: PNEUMONIA
     Route: 065
     Dates: start: 20100403, end: 20100414
  10. SEIBULE [Concomitant]
     Indication: DIABETES MELLITUS
     Route: 048
     Dates: start: 20070725, end: 20100414
  11. LIVALO [Concomitant]
     Indication: LIPIDS ABNORMAL
     Route: 048
     Dates: start: 20081112, end: 20100402

REACTIONS (2)
  - CARDIAC FAILURE ACUTE [None]
  - RESPIRATORY FAILURE [None]
